FAERS Safety Report 4870344-8 (Version None)
Quarter: 2006Q1

REPORT INFORMATION
  Report Type: 
  Country: None (occurrence: None)
  Receive Date: 20060103
  Receipt Date: 20050715
  Transmission Date: 20060701
  Serious: Yes (Disabling)
  Sender: FDA-Public Use
  Company Number: GB-BOEHRINGER INGELHEIM PHARMACEUTICALS, INC.-2005-UK-01300UK

PATIENT
  Sex: Female
  Weight: 92 kg

DRUGS (5)
  1. TIPRANAVIR/RITONAVIR [Suspect]
     Indication: HIV INFECTION
     Dosage: TIPRANAVIR 500MG / RITONAVIR 200MG BD
     Route: 048
     Dates: start: 20040513, end: 20040816
  2. KALETRA [Concomitant]
     Indication: HIV INFECTION
     Route: 048
     Dates: start: 20010604, end: 20040816
  3. TENOFOVIR [Concomitant]
     Indication: HIV INFECTION
     Route: 048
     Dates: start: 20020425, end: 20040425
  4. ABACAVIR [Concomitant]
     Indication: HIV INFECTION
     Route: 048
     Dates: start: 20001102, end: 20050414
  5. ATAZANAVIR [Concomitant]
     Indication: HIV INFECTION
     Route: 048
     Dates: start: 20040819

REACTIONS (4)
  - DIARRHOEA [None]
  - DRUG INEFFECTIVE [None]
  - PRURITUS [None]
  - RASH [None]
